FAERS Safety Report 8485830-1 (Version None)
Quarter: 2012Q3

REPORT INFORMATION
  Report Type: 
  Country: None (occurrence: None)
  Receive Date: 20120703
  Receipt Date: 20120628
  Transmission Date: 20120928
  Serious: Yes (Other)
  Sender: FDA-Public Use
  Company Number: PHHY2012FR055593

PATIENT
  Age: 8 Year
  Sex: Female

DRUGS (3)
  1. ANAKINRA [Suspect]
     Indication: MEVALONATE KINASE DEFICIENCY
     Dosage: 5 MG/KG, QD
  2. ACZ885 [Suspect]
     Indication: HYPER IGD SYNDROME
     Dosage: 7 MG/KG, EVERY 4 TO 8 WEEKS
  3. ACZ885 [Suspect]
     Indication: MEVALONATE KINASE DEFICIENCY
     Dosage: 7 MG/KG, EVERY 4 WEEKS

REACTIONS (1)
  - HEPATITIS [None]
